FAERS Safety Report 6411094-6 (Version None)
Quarter: 2009Q4

REPORT INFORMATION
  Report Type: 
  Country: None (occurrence: None)
  Receive Date: 20091013
  Receipt Date: 20091002
  Transmission Date: 20100525
  Serious: Yes (Hospitalization)
  Sender: FDA-Public Use
  Company Number: CHPA2009US19535

PATIENT
  Age: 62 Year
  Sex: Female
  Weight: 63.9 kg

DRUGS (3)
  1. PERDIEM OVERNIGHT RELIEF PILLS [Suspect]
     Indication: CONSTIPATION
     Dosage: 2 TABLETS/ QHS, ORAL
     Route: 048
     Dates: start: 20090601, end: 20090927
  2. DEMEROL [Concomitant]
  3. FENTANYL [Concomitant]

REACTIONS (6)
  - ABDOMINAL ADHESIONS [None]
  - ABDOMINAL PAIN UPPER [None]
  - GASTROINTESTINAL MALFORMATION [None]
  - HYSTERECTOMY [None]
  - INTENTIONAL DRUG MISUSE [None]
  - SCAR [None]
